FAERS Safety Report 4881327-6 (Version None)
Quarter: 2005Q4

REPORT INFORMATION
  Report Type: 
  Country: None (occurrence: None)
  Receive Date: 20051212
  Receipt Date: 20050824
  Transmission Date: 20060501
  Serious: Yes (Disabling)
  Sender: FDA-Public Use
  Company Number: 2005-01807

PATIENT
  Age: 57 Year
  Sex: Male
  Weight: 81.6 kg

DRUGS (1)
  1. VELCADE [Suspect]
     Indication: MULTIPLE MYELOMA
     Dosage: 2.50 MG, 2/WEE, IV BOLUS
     Route: 040
     Dates: start: 20050501

REACTIONS (3)
  - DIARRHOEA [None]
  - DYSPNOEA [None]
  - HYPOTENSION [None]
